FAERS Safety Report 18020724 (Version 7)
Quarter: 2020Q4

REPORT INFORMATION
  Report Type: Spontaneous
  Country: US (occurrence: US)
  Receive Date: 20200714
  Receipt Date: 20201231
  Transmission Date: 20210113
  Serious: Yes (Other)
  Sender: FDA-Public Use
  Company Number: US-GLAXOSMITHKLINE-US2020AMR128787

PATIENT
  Sex: Female

DRUGS (5)
  1. ZEJULA [Suspect]
     Active Substance: NIRAPARIB
     Dosage: 200 MG, QD
  2. ZEJULA [Suspect]
     Active Substance: NIRAPARIB
     Dosage: 200 MG, QD
  3. ZEJULA [Suspect]
     Active Substance: NIRAPARIB
     Dosage: 200 MG, QD
     Route: 048
  4. ZEJULA [Suspect]
     Active Substance: NIRAPARIB
     Dosage: 200 MG, QD
  5. ZEJULA [Suspect]
     Active Substance: NIRAPARIB
     Indication: OVARIAN CANCER
     Dosage: 200 MG, QD
     Dates: start: 20200630

REACTIONS (24)
  - Pain in extremity [Unknown]
  - Pain [Unknown]
  - Muscular weakness [Unknown]
  - Headache [Unknown]
  - Fall [Unknown]
  - Social problem [Unknown]
  - Blood sodium decreased [Not Recovered/Not Resolved]
  - Dry mouth [Unknown]
  - Hepatitis C [Unknown]
  - Blood potassium decreased [Not Recovered/Not Resolved]
  - Facial bones fracture [Unknown]
  - Nasal injury [Unknown]
  - Urinary retention [Unknown]
  - Nausea [Unknown]
  - Fatigue [Not Recovered/Not Resolved]
  - Malaise [Unknown]
  - Decreased appetite [Unknown]
  - Musculoskeletal discomfort [Unknown]
  - White blood cell count decreased [Recovered/Resolved]
  - Neuropathy peripheral [Unknown]
  - Bone pain [Unknown]
  - Depression [Unknown]
  - Adverse drug reaction [Unknown]
  - Vertigo [Unknown]
